FAERS Safety Report 23047251 (Version 1)
Quarter: 2023Q4

REPORT INFORMATION
  Report Type: Report from Study
  Country: US (occurrence: US)
  Receive Date: 20231009
  Receipt Date: 20231009
  Transmission Date: 20240109
  Serious: Yes (Other)
  Sender: FDA-Public Use
  Company Number: US-ABBVIE-5438834

PATIENT
  Age: 75 Year
  Sex: Female
  Weight: 89.811 kg

DRUGS (1)
  1. ARMOUR THYROID [Suspect]
     Active Substance: THYROID, PORCINE
     Indication: Hypothyroidism
     Dosage: FORM STRENGTH: 90 MILLIGRAM
     Route: 048

REACTIONS (3)
  - Rotator cuff syndrome [Recovered/Resolved]
  - Pain in extremity [Recovering/Resolving]
  - Fall [Recovered/Resolved]

NARRATIVE: CASE EVENT DATE: 20230601
